FAERS Safety Report 9293563 (Version 1)
Quarter: 2013Q2

REPORT INFORMATION
  Report Type: Spontaneous
  Country: CN (occurrence: CN)
  Receive Date: 20130516
  Receipt Date: 20130516
  Transmission Date: 20140414
  Serious: Yes (Hospitalization)
  Sender: FDA-Public Use
  Company Number: CN-ABBOTT-13X-035-1088498-00

PATIENT
  Age: 76 Year
  Sex: Male
  Weight: 52 kg

DRUGS (1)
  1. HYTRIN [Suspect]
     Indication: BENIGN PROSTATIC HYPERPLASIA
     Dosage: BEFORE BEDTIME
     Dates: start: 20130428, end: 20130502

REACTIONS (4)
  - Fall [Unknown]
  - Fall [Unknown]
  - Fall [Unknown]
  - Orthostatic hypotension [Recovered/Resolved]
